FAERS Safety Report 17960715 (Version 1)
Quarter: 2020Q2

REPORT INFORMATION
  Report Type: Spontaneous
  Country: US (occurrence: US)
  Receive Date: 20200629
  Receipt Date: 20200629
  Transmission Date: 20200714
  Serious: Yes (Other)
  Sender: FDA-Public Use
  Company Number: US-ROCHE-2448652

PATIENT
  Age: 61 Year
  Sex: Female

DRUGS (5)
  1. XELODA [Suspect]
     Active Substance: CAPECITABINE
     Indication: PRODUCT USED FOR UNKNOWN INDICATION
     Route: 065
  2. ANASTROZOLE. [Concomitant]
     Active Substance: ANASTROZOLE
  3. OXYCODONE [Concomitant]
     Active Substance: OXYCODONE
  4. LOSARTAN. [Concomitant]
     Active Substance: LOSARTAN
  5. IBRANCE [Concomitant]
     Active Substance: PALBOCICLIB
     Route: 065
     Dates: start: 2017

REACTIONS (5)
  - Pigmentation disorder [Unknown]
  - Drug ineffective [Recovered/Resolved]
  - Gastric disorder [Recovered/Resolved]
  - Pain [Recovered/Resolved]
  - Stomatitis [Unknown]

NARRATIVE: CASE EVENT DATE: 20190815
